FAERS Safety Report 24358143 (Version 4)
Quarter: 2024Q4

REPORT INFORMATION
  Report Type: Spontaneous
  Country: JP (occurrence: JP)
  Receive Date: 20240924
  Receipt Date: 20241024
  Transmission Date: 20250115
  Serious: Yes (Death, Other)
  Sender: JOHNSON AND JOHNSON
  Company Number: JP-ACTELION-A-CH2020-202626

PATIENT
  Age: 2 Month
  Sex: Female
  Weight: 1.026 kg

DRUGS (5)
  1. BOSENTAN [Suspect]
     Active Substance: BOSENTAN
     Indication: Pulmonary hypertension
     Route: 048
  2. BOSENTAN [Suspect]
     Active Substance: BOSENTAN
     Indication: Pulmonary arterial hypertension
  3. EPOPROSTENOL SODIUM [Suspect]
     Active Substance: EPOPROSTENOL SODIUM
     Indication: Pulmonary hypertension
     Route: 042
  4. EPOPROSTENOL SODIUM [Suspect]
     Active Substance: EPOPROSTENOL SODIUM
     Indication: Pulmonary arterial hypertension
  5. NITRIC OXIDE [Concomitant]
     Active Substance: NITRIC OXIDE
     Indication: Pulmonary hypertension
     Route: 055

REACTIONS (14)
  - Pulmonary hypertension [Fatal]
  - Respiratory failure [Fatal]
  - Oxygen consumption increased [Fatal]
  - Right ventricular failure [Unknown]
  - Ascites [Unknown]
  - Abdominal distension [Unknown]
  - Bronchopulmonary dysplasia [Unknown]
  - Anaemia [Not Recovered/Not Resolved]
  - Thrombocytopenia [Unknown]
  - Pyrexia [Unknown]
  - Red blood cell transfusion [Unknown]
  - Platelet transfusion [Unknown]
  - Disease progression [Unknown]
  - Off label use [Unknown]
